FAERS Safety Report 9405734 (Version 1)
Quarter: 2013Q3

REPORT INFORMATION
  Report Type: Spontaneous
  Country: US (occurrence: US)
  Receive Date: 20130717
  Receipt Date: 20130717
  Transmission Date: 20140515
  Serious: Yes (Death, Hospitalization)
  Sender: FDA-Public Use
  Company Number: US-GLAXOSMITHKLINE-A0789259A

PATIENT
  Age: 69 Year
  Sex: Female

DRUGS (1)
  1. AVANDIA [Suspect]
     Indication: DIABETES MELLITUS
     Dosage: 4MG PER DAY
     Route: 048
     Dates: start: 20020327, end: 20051113

REACTIONS (5)
  - Myocardial infarction [Fatal]
  - Cardiac failure congestive [Fatal]
  - Cerebral infarction [Unknown]
  - Colitis ischaemic [Unknown]
  - Mesenteric artery stenosis [Unknown]
